FAERS Safety Report 22748787 (Version 2)
Quarter: 2024Q1

REPORT INFORMATION
  Report Type: Spontaneous
  Country: IN (occurrence: IN)
  Receive Date: 20230725
  Receipt Date: 20240201
  Transmission Date: 20240410
  Serious: Yes (Other)
  Sender: FDA-Public Use
  Company Number: IN-PFIZER INC-202200243628

PATIENT
  Age: 44 Year
  Sex: Female

DRUGS (2)
  1. CRIZOTINIB [Suspect]
     Active Substance: CRIZOTINIB
     Indication: Lung neoplasm malignant
     Dosage: UNK
     Route: 048
  2. CRIZOTINIB [Suspect]
     Active Substance: CRIZOTINIB
     Dosage: 250 MG, 2X/DAY
     Route: 048

REACTIONS (3)
  - Limb injury [Unknown]
  - Fracture [Unknown]
  - Pyrexia [Unknown]
